FAERS Safety Report 7794420-5 (Version None)
Quarter: 2011Q4

REPORT INFORMATION
  Report Type: 
  Country: None (occurrence: None)
  Receive Date: 20111004
  Receipt Date: 20111004
  Transmission Date: 20120403
  Serious: Yes (Other)
  Sender: FDA-Public Use
  Company Number: None

PATIENT
  Age: 34 Year
  Sex: Male
  Weight: 90.718 kg

DRUGS (1)
  1. CREST PRO HEALTH CLEAN MINT [Suspect]
     Dosage: 1-INCH STRIP OF PASTE
     Route: 048

REACTIONS (5)
  - DRY MOUTH [None]
  - AGEUSIA [None]
  - APTYALISM [None]
  - TONGUE ULCERATION [None]
  - GLOSSODYNIA [None]
